FAERS Safety Report 8407828-1 (Version None)
Quarter: 2012Q2

REPORT INFORMATION
  Report Type: 
  Country: None (occurrence: None)
  Receive Date: 20120604
  Receipt Date: 20120601
  Transmission Date: 20120825
  Serious: Yes (Death, Other)
  Sender: FDA-Public Use
  Company Number: PHHY2012GB046985

PATIENT
  Age: 17 Year
  Sex: Male

DRUGS (4)
  1. CHLORPHENIRAMINE MALEATE [Suspect]
  2. ISOTRETINOIN [Suspect]
     Dates: start: 20100501
  3. CHLORPHENIRAMINE MALEATE [Suspect]
     Dosage: 21 DF, UNK
     Dates: start: 20100928
  4. ACETAMINOPHEN [Suspect]
     Dosage: 2 DF, UNK
     Dates: start: 20100928

REACTIONS (14)
  - SUICIDAL IDEATION [None]
  - OVERDOSE [None]
  - DRY SKIN [None]
  - ERYTHEMA [None]
  - LIP DRY [None]
  - OROPHARYNGEAL PAIN [None]
  - MACULAR SCAR [None]
  - INGROWING NAIL [None]
  - PERSONALITY CHANGE [None]
  - PAIN IN EXTREMITY [None]
  - SUICIDE ATTEMPT [None]
  - GASTRIC INFECTION [None]
  - LOCALISED INFECTION [None]
  - COMPLETED SUICIDE [None]
